FAERS Safety Report 22049203 (Version 1)
Quarter: 2023Q1

REPORT INFORMATION
  Report Type: Spontaneous
  Country: US (occurrence: None)
  Receive Date: 20230228
  Receipt Date: 20230228
  Transmission Date: 20230417
  Serious: Yes (Life-Threatening, Disabling)
  Sender: FDA-Public Use
  Company Number: None

PATIENT
  Age: 59 Year
  Sex: Female
  Weight: 58.5 kg

DRUGS (5)
  1. KLONOPIN [Suspect]
     Active Substance: CLONAZEPAM
     Indication: Anxiety
     Dosage: OTHER QUANTITY : 2 TABLET(S);?FREQUENCY : EVERY 8 HOURS;?
     Route: 048
  2. ATIVAN [Concomitant]
     Active Substance: LORAZEPAM
  3. SERTRALINE [Concomitant]
     Active Substance: SERTRALINE HYDROCHLORIDE
  4. GABAPENTIN [Concomitant]
     Active Substance: GABAPENTIN
  5. MELATONIN [Concomitant]
     Active Substance: MELATONIN

REACTIONS (20)
  - Loss of personal independence in daily activities [None]
  - Withdrawal syndrome [None]
  - Insomnia [None]
  - Confusional state [None]
  - Dissociation [None]
  - Panic attack [None]
  - Nausea [None]
  - Abdominal pain [None]
  - Muscle spasms [None]
  - Vertigo [None]
  - Arthralgia [None]
  - Cognitive disorder [None]
  - Anxiety [None]
  - Depression [None]
  - Suicidal ideation [None]
  - Emotional distress [None]
  - Impaired work ability [None]
  - Impaired driving ability [None]
  - Agoraphobia [None]
  - Impaired self-care [None]

NARRATIVE: CASE EVENT DATE: 20220401
